FAERS Safety Report 4331060-4 (Version None)
Quarter: 2004Q2

REPORT INFORMATION
  Report Type: 
  Country: None (occurrence: None)
  Receive Date: 20040405
  Receipt Date: 20040329
  Transmission Date: 20050107
  Serious: Yes (Life-Threatening, Hospitalization)
  Sender: FDA-Public Use
  Company Number: PHFR2004GB01560

PATIENT
  Age: 36 Year
  Sex: Female

DRUGS (4)
  1. DICLOFENAC SODIUM [Suspect]
     Indication: BACK PAIN
     Dosage: 1 UNK, BID
     Route: 048
     Dates: start: 20030424, end: 20040221
  2. CLOTRIMAZOLE [Concomitant]
     Route: 065
     Dates: start: 20040213
  3. TYLEX [Concomitant]
     Dosage: 2 PRN
     Route: 065
     Dates: start: 19940919
  4. ERYTHROMYCIN ETHYLSUCCINATE [Concomitant]
     Dosage: 1 UNK, QID
     Route: 065
     Dates: end: 20040213

REACTIONS (1)
  - IRON DEFICIENCY ANAEMIA [None]
